FAERS Safety Report 5051030-0 (Version None)
Quarter: 2006Q3

REPORT INFORMATION
  Report Type: 
  Country: None (occurrence: None)
  Receive Date: 20060714
  Receipt Date: 20060707
  Transmission Date: 20061208
  Serious: Yes (Life-Threatening)
  Sender: FDA-Public Use
  Company Number: CN-JNJFOC-20060701791

PATIENT
  Sex: Female
  Weight: 52 kg

DRUGS (2)
  1. TYLENOL EXTENDED RELEASE [Suspect]
     Indication: PAIN
  2. TYLENOL EXTENDED RELEASE [Suspect]
     Indication: PYREXIA

REACTIONS (1)
  - HEPATIC FUNCTION ABNORMAL [None]
